FAERS Safety Report 18113429 (Version 8)
Quarter: 2021Q3

REPORT INFORMATION
  Report Type: Spontaneous
  Country: US (occurrence: US)
  Receive Date: 20200805
  Receipt Date: 20210909
  Transmission Date: 20211014
  Serious: No
  Sender: FDA-Public Use
  Company Number: US-PFIZER INC-2020295086

PATIENT
  Age: 62 Year
  Sex: Female

DRUGS (3)
  1. IBRANCE [Suspect]
     Active Substance: PALBOCICLIB
     Indication: BREAST CANCER FEMALE
     Dosage: 125 MG
     Dates: start: 20200729
  2. IBRANCE [Suspect]
     Active Substance: PALBOCICLIB
     Dosage: 125 MG
     Dates: start: 20200824
  3. IBRANCE [Suspect]
     Active Substance: PALBOCICLIB
     Dosage: 125 MG, 1X/DAY (FOR 21 DAYS))
     Route: 048

REACTIONS (7)
  - Product dose omission issue [Unknown]
  - Fatigue [Unknown]
  - Constipation [Unknown]
  - Headache [Unknown]
  - Neoplasm progression [Unknown]
  - Diarrhoea [Unknown]
  - Decreased appetite [Unknown]

NARRATIVE: CASE EVENT DATE: 2020
